FAERS Safety Report 19809132 (Version 1)
Quarter: 2021Q3

REPORT INFORMATION
  Report Type: Other
  Country: CN (occurrence: CN)
  Receive Date: 20210908
  Receipt Date: 20210908
  Transmission Date: 20211014
  Serious: No
  Sender: FDA-Public Use
  Company Number: CN-ROCHE-2906468

PATIENT
  Age: 32 Year
  Sex: Female

DRUGS (5)
  1. CEFACLOR. [Concomitant]
     Active Substance: CEFACLOR
  2. ABIDOR [Concomitant]
  3. OSELTAMIVIR [Suspect]
     Active Substance: OSELTAMIVIR
     Indication: COVID-19
     Route: 065
  4. TAZOBACTAM SODIUM [Concomitant]
     Active Substance: TAZOBACTAM SODIUM
  5. CEFOPERAZONE SODIUM [Concomitant]
     Active Substance: CEFOPERAZONE SODIUM

REACTIONS (4)
  - Placental disorder [Unknown]
  - Maternal exposure during pregnancy [Unknown]
  - Off label use [Unknown]
  - Gestational hypertension [Unknown]
